FAERS Safety Report 18417652 (Version 4)
Quarter: 2021Q2

REPORT INFORMATION
  Report Type: Spontaneous
  Country: US (occurrence: US)
  Receive Date: 20201022
  Receipt Date: 20210413
  Transmission Date: 20210717
  Serious: Yes (Hospitalization)
  Sender: FDA-Public Use
  Company Number: 2020SGN02758

PATIENT
  Sex: Female

DRUGS (3)
  1. CAPECITABINE. [Concomitant]
     Active Substance: CAPECITABINE
  2. TUKYSA [Suspect]
     Active Substance: TUCATINIB
     Indication: BREAST CANCER FEMALE
     Dosage: UNK
     Route: 048
  3. TUKYSA [Suspect]
     Active Substance: TUCATINIB
     Dosage: UNK

REACTIONS (13)
  - Fall [Unknown]
  - Chest injury [Unknown]
  - Disease progression [Unknown]
  - Nausea [Recovering/Resolving]
  - Dizziness [Unknown]
  - Weight decreased [Unknown]
  - Unevaluable event [Unknown]
  - Oncologic complication [Unknown]
  - Hospitalisation [Unknown]
  - Diarrhoea [Unknown]
  - Contusion [Unknown]
  - Vomiting [Unknown]
  - Head injury [Unknown]
